FAERS Safety Report 6892129-3 (Version None)
Quarter: 2010Q3

REPORT INFORMATION
  Report Type: 
  Country: None (occurrence: None)
  Receive Date: 20100731
  Receipt Date: 20080205
  Transmission Date: 20110219
  Serious: No
  Sender: FDA-Public Use
  Company Number: US-PFIZER INC-2008011630

PATIENT
  Sex: Female
  Weight: 73.2 kg

DRUGS (1)
  1. NEURONTIN [Suspect]
     Indication: NEURALGIA
     Dates: start: 19990101

REACTIONS (1)
  - BLOOD GLUCOSE INCREASED [None]
